FAERS Safety Report 6658651-X (Version None)
Quarter: 2010Q1

REPORT INFORMATION
  Report Type: 
  Country: None (occurrence: None)
  Receive Date: 20100325
  Receipt Date: 20100313
  Transmission Date: 20100710
  Serious: Yes (Hospitalization, Other)
  Sender: FDA-Public Use
  Company Number: 230020M10DEU

PATIENT
  Age: 49 Year
  Sex: Female
  Weight: 73 kg

DRUGS (4)
  1. REBIF [Suspect]
     Indication: DRUG USE FOR UNKNOWN INDICATION
     Dates: start: 20011114
  2. REBIF [Suspect]
     Indication: DRUG USE FOR UNKNOWN INDICATION
     Dates: start: 20091101
  3. REBIF [Suspect]
     Dates: start: 20091101
  4. PIRACETAM (PIRACETAM) [Concomitant]

REACTIONS (1)
  - BREAST CANCER FEMALE [None]
